FAERS Safety Report 21924219 (Version 3)
Quarter: 2023Q1

REPORT INFORMATION
  Report Type: Spontaneous
  Country: US (occurrence: US)
  Receive Date: 20230130
  Receipt Date: 20230215
  Transmission Date: 20230418
  Serious: Yes (Hospitalization)
  Sender: FDA-Public Use
  Company Number: US-GBT-019644

PATIENT
  Age: 35 Year
  Sex: Female

DRUGS (1)
  1. OXBRYTA [Suspect]
     Active Substance: VOXELOTOR
     Indication: Sickle cell disease
     Route: 048
     Dates: start: 20230110, end: 20230118

REACTIONS (6)
  - Pneumonia [Unknown]
  - Pruritus [Unknown]
  - Pruritus [Unknown]
  - Malaise [Unknown]
  - Therapy cessation [Unknown]
  - Rash [Unknown]

NARRATIVE: CASE EVENT DATE: 20230101
